FAERS Safety Report 17989915 (Version 4)
Quarter: 2021Q4

REPORT INFORMATION
  Report Type: Spontaneous
  Country: US (occurrence: US)
  Receive Date: 20200707
  Receipt Date: 20211206
  Transmission Date: 20220303
  Serious: Yes (Other)
  Sender: FDA-Public Use
  Company Number: US-BAYER-2020-129407

PATIENT
  Age: 28 Year
  Sex: Male

DRUGS (2)
  1. GADAVIST [Suspect]
     Active Substance: GADOBUTROL
     Indication: Magnetic resonance imaging abdominal
     Dosage: UNK UNK, ONCE
     Route: 042
     Dates: start: 20200110, end: 20200110
  2. GADAVIST [Suspect]
     Active Substance: GADOBUTROL
     Indication: Umbilical haemorrhage
     Dosage: UNK UNK, ONCE
     Route: 042
     Dates: start: 20200610, end: 20200610

REACTIONS (13)
  - Nephropathy toxic [Not Recovered/Not Resolved]
  - Contrast media reaction [Not Recovered/Not Resolved]
  - Contrast media toxicity [None]
  - Throat tightness [None]
  - Dyspnoea [None]
  - Lip swelling [None]
  - Swollen tongue [None]
  - Swelling face [None]
  - Eye swelling [None]
  - Arthralgia [None]
  - Renal pain [None]
  - Pain [Not Recovered/Not Resolved]
  - Pain [None]

NARRATIVE: CASE EVENT DATE: 20200110
